FAERS Safety Report 6619458-2 (Version None)
Quarter: 2010Q1

REPORT INFORMATION
  Report Type: 
  Country: None (occurrence: None)
  Receive Date: 20100309
  Receipt Date: 20100225
  Transmission Date: 20100710
  Serious: Yes (Other)
  Sender: FDA-Public Use
  Company Number: HR-WYE-H13861710

PATIENT
  Age: 30 Year
  Sex: Female

DRUGS (2)
  1. CONTROLOC [Suspect]
     Dosage: UNKNOWN
  2. LEVOTHYROXINE [Interacting]
     Dosage: UNKNOWN

REACTIONS (2)
  - DRUG INTERACTION [None]
  - HYPOTHYROIDISM [None]
